FAERS Safety Report 9190446 (Version 2)
Quarter: 2012Q4

REPORT INFORMATION
  Report Type: 
  Country: US (occurrence: US)
  Receive Date: 20121220
  Receipt Date: 20121231
  Transmission Date: 20130627
  Serious: Yes (Other)
  Sender: FDA-Public Use
  Company Number: US-RB-047865-12

PATIENT
  Age: 71 Year
  Sex: Female

DRUGS (3)
  1. MUCINEX DM (GUAIFENESIN) [Suspect]
     Indication: PRODUCT USED FOR UNKNOWN INDICATION
     Dosage: Two tablets, Patient was still taking the Mucinex DM 2 times a day
     Route: 048
     Dates: start: 20121217
  2. MUCINEX DM (DEXTROMETHORPHAN HYDROBROMIDE) [Suspect]
  3. CELEXA [Concomitant]
     Indication: DEPRESSION

REACTIONS (5)
  - Hallucination, auditory [Recovered/Resolved]
  - Anxiety [Recovered/Resolved]
  - Delusion [Recovered/Resolved]
  - Wheezing [Recovered/Resolved]
  - Bronchitis [Recovered/Resolved]
